FAERS Safety Report 8005792-0 (Version None)
Quarter: 2011Q4

REPORT INFORMATION
  Report Type: 
  Country: None (occurrence: None)
  Receive Date: 20111223
  Receipt Date: 20111214
  Transmission Date: 20120403
  Serious: Yes (Hospitalization)
  Sender: FDA-Public Use
  Company Number: US-ASTRAZENECA-2010SE23160

PATIENT
  Age: 53 Year
  Sex: Female

DRUGS (8)
  1. RESITIN [Concomitant]
  2. ALBUTEROL [Concomitant]
  3. LORATADINE [Concomitant]
  4. ZETALOPRAM [Concomitant]
  5. PULMICORT [Suspect]
     Indication: ASTHMA
     Route: 055
     Dates: start: 20040101
  6. LISINOPRIL [Concomitant]
  7. ALLOPURINOL [Concomitant]
  8. WARFARIN [Concomitant]

REACTIONS (7)
  - CELLULITIS [None]
  - THROMBOSIS [None]
  - DEEP VEIN THROMBOSIS [None]
  - HYPERTENSION [None]
  - DRUG DOSE OMISSION [None]
  - DYSPNOEA [None]
  - ASTHMA [None]
